FAERS Safety Report 4589627-4 (Version None)
Quarter: 2005Q1

REPORT INFORMATION
  Report Type: 
  Country: None (occurrence: None)
  Receive Date: 20050223
  Receipt Date: 20050221
  Transmission Date: 20050727
  Serious: Yes (Life-Threatening)
  Sender: FDA-Public Use
  Company Number: PHBS2005ES02593

PATIENT
  Age: 56 Year
  Sex: Male

DRUGS (1)
  1. TRILEPTAL [Suspect]
     Indication: EPILEPSY
     Dosage: 1 G/D
     Route: 065
     Dates: start: 20021010

REACTIONS (1)
  - ADAMS-STOKES SYNDROME [None]
